FAERS Safety Report 25761067 (Version 1)
Quarter: 2025Q3

REPORT INFORMATION
  Report Type: Spontaneous
  Country: GB (occurrence: GB)
  Receive Date: 20250904
  Receipt Date: 20250904
  Transmission Date: 20251020
  Serious: Yes (Other)
  Sender: ELI LILLY AND COMPANY
  Company Number: None

PATIENT
  Age: 50 Year
  Sex: Female

DRUGS (1)
  1. MOUNJARO [Suspect]
     Active Substance: TIRZEPATIDE
     Indication: Product used for unknown indication
     Route: 065
     Dates: start: 20250405

REACTIONS (4)
  - Hyperthyroidism [Recovered/Resolved]
  - Brain fog [Unknown]
  - Mobility decreased [Unknown]
  - Movement disorder [Unknown]

NARRATIVE: CASE EVENT DATE: 20250625
